FAERS Safety Report 7442952-1 (Version None)
Quarter: 2011Q2

REPORT INFORMATION
  Report Type: 
  Country: None (occurrence: None)
  Receive Date: 20110425
  Receipt Date: 20110425
  Transmission Date: 20111010
  Serious: Yes (Other)
  Sender: FDA-Public Use
  Company Number: None

PATIENT
  Sex: Female

DRUGS (1)
  1. ACTHAR [Suspect]
     Indication: MULTIPLE SCLEROSIS
     Dosage: 80 U DAILY SC
     Route: 058
     Dates: start: 20110331, end: 20110404

REACTIONS (7)
  - VISION BLURRED [None]
  - DIPLOPIA [None]
  - IMPAIRED DRIVING ABILITY [None]
  - ABASIA [None]
  - DYSGEUSIA [None]
  - THINKING ABNORMAL [None]
  - MOBILITY DECREASED [None]
